FAERS Safety Report 6212758-X (Version None)
Quarter: 2009Q2

REPORT INFORMATION
  Report Type: 
  Country: None (occurrence: None)
  Receive Date: 20090603
  Receipt Date: 20090602
  Transmission Date: 20091009
  Serious: Yes (Life-Threatening)
  Sender: FDA-Public Use
  Company Number: FR-ASTRAZENECA-2009CG00847

PATIENT
  Age: 19030 Day
  Sex: Male

DRUGS (3)
  1. DIPRIVAN [Suspect]
     Indication: INDUCTION OF ANAESTHESIA
     Route: 042
     Dates: start: 20090330
  2. SUFENTANIL MERCK [Suspect]
     Indication: INDUCTION OF ANAESTHESIA
     Dates: start: 20090330
  3. NIMBEX [Suspect]
     Indication: INDUCTION OF ANAESTHESIA
     Route: 042
     Dates: start: 20090330

REACTIONS (3)
  - CIRCULATORY COLLAPSE [None]
  - FACE OEDEMA [None]
  - TACHYCARDIA [None]
